FAERS Safety Report 9837184 (Version 1)
Quarter: 2013Q4

REPORT INFORMATION
  Report Type: Spontaneous
  Country: US (occurrence: None)
  Receive Date: 20131205
  Receipt Date: 20131205
  Transmission Date: 20140711
  Serious: Yes (Other)
  Sender: FDA-Public Use
  Company Number: 163-POMAL-13111183

PATIENT
  Age: 77 Year
  Sex: Female
  Weight: 75.3 kg

DRUGS (7)
  1. POMALYST [Suspect]
     Indication: PLASMA CELL MYELOMA
     Dosage: 1 IN 1 D
     Route: 048
     Dates: start: 20130909, end: 2013
  2. VITAMIN D [Concomitant]
  3. LASIX [Concomitant]
  4. ZOFRAN [Concomitant]
  5. SYNTHROID [Concomitant]
  6. CATAPRES [Concomitant]
  7. NORVASC [Concomitant]

REACTIONS (1)
  - Hyponatraemia [None]
